FAERS Safety Report 9799953 (Version 2)
Quarter: 2014Q1

REPORT INFORMATION
  Report Type: Report from Study
  Country: CN (occurrence: CN)
  Receive Date: 20140106
  Receipt Date: 20140106
  Transmission Date: 20141002
  Serious: Yes (Hospitalization)
  Sender: FDA-Public Use
  Company Number: CN-BAYER-2012-092368

PATIENT
  Sex: Female
  Weight: 65 kg

DRUGS (7)
  1. REGORAFENIB [Suspect]
     Indication: COLON CANCER
     Dosage: DAILY DOSE 160 MG
     Route: 048
     Dates: start: 20120703, end: 20120826
  2. REGORAFENIB [Suspect]
     Indication: COLON CANCER
     Dosage: 160 MG, QD
     Dates: start: 20120910, end: 20121019
  3. REGORAFENIB [Suspect]
     Indication: COLON CANCER
     Dosage: 160 MG DAILY
     Route: 048
     Dates: end: 20130205
  4. MICARDIS [Concomitant]
     Indication: HYPERTENSION
     Dosage: DAILY DOSE 80 MG
     Route: 048
     Dates: start: 20120823
  5. LOTENSIN [Concomitant]
     Indication: HYPERTENSION
     Dosage: DAILY DOSE 5 MG
     Route: 048
     Dates: start: 20120823
  6. NORVASC [Concomitant]
     Indication: HYPERTENSION
     Dosage: DAILY DOSE 10 MG
     Route: 048
     Dates: start: 20120823
  7. NORVASC [Concomitant]
     Indication: HYPERTENSION
     Dosage: 5 MG DAILY
     Route: 048

REACTIONS (3)
  - Radiation proctitis [Recovered/Resolved]
  - Radiation proctitis [Recovering/Resolving]
  - Gastroenteritis radiation [Recovering/Resolving]
